FAERS Safety Report 7824088-0 (Version None)
Quarter: 2011Q4

REPORT INFORMATION
  Report Type: 
  Country: None (occurrence: None)
  Receive Date: 20111019
  Receipt Date: 20111014
  Transmission Date: 20120403
  Serious: Yes (Hospitalization, Other)
  Sender: FDA-Public Use
  Company Number: PHHY2011TR30117

PATIENT
  Sex: Female

DRUGS (3)
  1. EXJADE [Suspect]
     Indication: THALASSAEMIA BETA
     Dosage: 1000 MG
     Route: 048
     Dates: start: 20090101
  2. DESFERAL [Concomitant]
     Indication: BONE MARROW TRANSPLANT
     Dosage: 0.5 MG,
  3. FERRIPROX [Concomitant]
     Indication: BONE MARROW TRANSPLANT
     Dosage: 100 MG,

REACTIONS (2)
  - SERUM FERRITIN INCREASED [None]
  - HEPATIC CIRRHOSIS [None]
